FAERS Safety Report 23019664 (Version 1)
Quarter: 2023Q4

REPORT INFORMATION
  Report Type: Spontaneous
  Country: US (occurrence: US)
  Receive Date: 20231003
  Receipt Date: 20231003
  Transmission Date: 20240110
  Serious: No
  Sender: FDA-Public Use
  Company Number: US-ELI_LILLY_AND_COMPANY-US202310000749

PATIENT
  Age: 36 Year
  Sex: Female

DRUGS (2)
  1. MOUNJARO [Suspect]
     Active Substance: TIRZEPATIDE
     Indication: Obesity
     Dosage: UNK UNK, UNKNOWN
     Route: 058
     Dates: start: 20230511
  2. MOUNJARO [Suspect]
     Active Substance: TIRZEPATIDE
     Indication: Obesity
     Dosage: 7.5 MG, UNKNOWN
     Route: 058
     Dates: start: 20230511

REACTIONS (5)
  - Off label use [Unknown]
  - Incorrect route of product administration [Recovered/Resolved]
  - Dizziness [Unknown]
  - Injection site haemorrhage [Recovered/Resolved]
  - Injection site pain [Unknown]

NARRATIVE: CASE EVENT DATE: 20230511
